FAERS Safety Report 16221384 (Version 3)
Quarter: 2020Q1

REPORT INFORMATION
  Report Type: Spontaneous
  Country: CH (occurrence: CH)
  Receive Date: 20190422
  Receipt Date: 20200331
  Transmission Date: 20200409
  Serious: Yes (Other)
  Sender: FDA-Public Use
  Company Number: CH-TEVA-2019-CH-1040125

PATIENT
  Age: 88 Year
  Sex: Male

DRUGS (26)
  1. CO-ENALAPRIL [Suspect]
     Active Substance: ENALAPRIL MALEATE\HYDROCHLOROTHIAZIDE
     Dosage: AT HOME 20/12.5 TABS 1 TAB X1/DAY PO STOPPED 15.04.19
     Route: 048
     Dates: end: 20190415
  2. IPRAMOL [Suspect]
     Active Substance: ALBUTEROL SULFATE\IPRATROPIUM BROMIDE
     Dosage: AS NECESSARY
     Route: 055
     Dates: start: 20190227, end: 20190318
  3. PREDNISONE. [Concomitant]
     Active Substance: PREDNISONE
     Dates: start: 20190313, end: 20190317
  4. NEXIUM [Concomitant]
     Active Substance: ESOMEPRAZOLE MAGNESIUM
     Dates: start: 20190425, end: 20190607
  5. CETIRIZINE [Suspect]
     Active Substance: CETIRIZINE HYDROCHLORIDE
     Dosage: 10 MILLIGRAM DAILY;
     Dates: start: 20190303, end: 20190312
  6. CLEXANE 40 MG [Suspect]
     Active Substance: ENOXAPARIN SODIUM
     Dosage: 40 MILLIGRAM DAILY;
     Route: 058
     Dates: start: 20190228, end: 20190308
  7. CLYSSIE [Concomitant]
     Dosage: AS NECESSARY ON DEMAND
     Dates: start: 20190304
  8. ATORVASTATINE [Concomitant]
     Active Substance: ATORVASTATIN
     Dosage: AT HOME
     Dates: start: 2011, end: 20190313
  9. CO-AMOXI [Suspect]
     Active Substance: AMOXICILLIN\CLAVULANATE POTASSIUM
     Dosage: 3 GRAM DAILY;
     Route: 048
     Dates: start: 20190228, end: 20190303
  10. CO-ENALAPRIL [Suspect]
     Active Substance: ENALAPRIL MALEATE\HYDROCHLOROTHIAZIDE
     Route: 048
     Dates: start: 20190425, end: 20190503
  11. AMLODIPINE [Suspect]
     Active Substance: AMLODIPINE BESYLATE
     Dosage: 10 MILLIGRAM DAILY; AT HOME
     Route: 048
     Dates: end: 20190415
  12. ENALAPRIL [Concomitant]
     Active Substance: ENALAPRIL
     Route: 065
     Dates: start: 20190503
  13. PRADIF T [Concomitant]
     Active Substance: TAMSULOSIN HYDROCHLORIDE
     Dates: start: 20190301
  14. DAFALGAN [Concomitant]
     Active Substance: ACETAMINOPHEN
     Dosage: AS NECESSARY ON DEMAND
     Dates: start: 20190227
  15. CETIRIZINE [Suspect]
     Active Substance: CETIRIZINE HYDROCHLORIDE
     Dates: start: 20190415
  16. TRAJENTA [Concomitant]
     Active Substance: LINAGLIPTIN
     Dosage: AT HOME
     Dates: end: 20190706
  17. CLARITHROMYCIN. [Concomitant]
     Active Substance: CLARITHROMYCIN
     Dates: start: 20190227, end: 20190301
  18. AVODART [Concomitant]
     Active Substance: DUTASTERIDE
     Dates: start: 20190322, end: 20190415
  19. CIPROFLOXACIN. [Suspect]
     Active Substance: CIPROFLOXACIN
     Dates: start: 20190603, end: 20190605
  20. IPRAMOL [Suspect]
     Active Substance: ALBUTEROL SULFATE\IPRATROPIUM BROMIDE
     Dosage: 4 DOSAGE FORMS DAILY;
     Route: 055
     Dates: start: 20190227
  21. CETIRIZINE [Suspect]
     Active Substance: CETIRIZINE HYDROCHLORIDE
     Dates: end: 20190412
  22. TAVANIC [Concomitant]
     Active Substance: LEVOFLOXACIN
     Dates: start: 20190303, end: 20190306
  23. CO-AMOXI [Suspect]
     Active Substance: AMOXICILLIN\CLAVULANATE POTASSIUM
     Dosage: 3.6 GRAM DAILY;
     Route: 042
     Dates: start: 20190227, end: 20190228
  24. ASPIRIN CARDIO [Suspect]
     Active Substance: ASPIRIN
     Dosage: 100 MILLIGRAM DAILY; AT HOME
     Dates: end: 20190311
  25. LAXOBERON [Concomitant]
     Active Substance: SODIUM PICOSULFATE
     Dates: start: 20190301
  26. DEXERYL [Concomitant]
     Dates: start: 20190306

REACTIONS (7)
  - Hyperleukocytosis [Recovered/Resolved]
  - Eosinophilia [Recovered/Resolved]
  - Urinary retention [Recovered/Resolved]
  - Eczema [Recovered/Resolved]
  - Urinary retention [Recovered/Resolved]
  - Drug reaction with eosinophilia and systemic symptoms [Recovered/Resolved]
  - Drug reaction with eosinophilia and systemic symptoms [Recovered/Resolved]

NARRATIVE: CASE EVENT DATE: 20190301
